FAERS Safety Report 8598311-1 (Version None)
Quarter: 2012Q3

REPORT INFORMATION
  Report Type: 
  Country: None (occurrence: None)
  Receive Date: 20120816
  Receipt Date: 20120808
  Transmission Date: 20120928
  Serious: Yes (Other)
  Sender: FDA-Public Use
  Company Number: JP-ABBOTT-12P-087-0963718-00

PATIENT
  Age: 8 Year
  Sex: Female

DRUGS (11)
  1. TOPIRAMATE [Suspect]
     Indication: INFANTILE SPASMS
  2. PHENOBARBITAL TAB [Suspect]
     Indication: INFANTILE SPASMS
  3. BENZODIAZEPINE DERIVATIVES [Concomitant]
     Indication: PRODUCT USED FOR UNKNOWN INDICATION
  4. CARBAMAZEPINE [Suspect]
     Indication: INFANTILE SPASMS
  5. LAMOTRIGINE [Suspect]
     Indication: INFANTILE SPASMS
  6. CORTICOTROPIN [Concomitant]
     Indication: INFANTILE SPASMS
  7. VALPROIC ACID [Suspect]
     Indication: INFANTILE SPASMS
  8. POTASSIUM BROMIDE [Concomitant]
     Indication: INFANTILE SPASMS
  9. CLONAZEPAM [Suspect]
     Indication: INFANTILE SPASMS
  10. PHENYTOIN [Suspect]
     Indication: INFANTILE SPASMS
  11. DIAZEPAM [Suspect]
     Indication: INFANTILE SPASMS

REACTIONS (2)
  - DRUG INEFFECTIVE [None]
  - ATONIC SEIZURES [None]
